FAERS Safety Report 7040213-6 (Version None)
Quarter: 2010Q3

REPORT INFORMATION
  Report Type: 
  Country: None (occurrence: None)
  Receive Date: 20100929
  Receipt Date: 20100603
  Transmission Date: 20110219
  Serious: Yes (Other)
  Sender: FDA-Public Use
  Company Number: US-WYE-H14975410

PATIENT
  Age: 30 Year
  Sex: Female
  Weight: 51.76 kg

DRUGS (1)
  1. PRISTIQ [Suspect]
     Indication: DEPRESSION
     Dosage: 50 MG 1X PER 1 DAY, ORAL
     Route: 048
     Dates: start: 20100401

REACTIONS (3)
  - ENERGY INCREASED [None]
  - MIDDLE INSOMNIA [None]
  - UNEVALUABLE EVENT [None]
